FAERS Safety Report 7920054-5 (Version None)
Quarter: 2011Q4

REPORT INFORMATION
  Report Type: 
  Country: None (occurrence: None)
  Receive Date: 20111117
  Receipt Date: 20111107
  Transmission Date: 20120403
  Serious: Yes (Hospitalization, Other)
  Sender: FDA-Public Use
  Company Number: US-BAYER-2011-055317

PATIENT
  Age: 44 Year
  Sex: Female

DRUGS (15)
  1. LEVOTHYROXINE SODIUM [Concomitant]
     Indication: BLOOD THYROID STIMULATING HORMONE DECREASED
  2. ASTHMA / BREATHING MEDICATIONS [Concomitant]
  3. NSAID'S [Concomitant]
  4. AMITIZA [Concomitant]
  5. FLONASE [Concomitant]
  6. ANTIBIOTICS [Concomitant]
  7. ASCORBIC ACID [Concomitant]
  8. PROCHLORPERAZINE [Concomitant]
     Indication: NAUSEA
  9. LIPITOR [Concomitant]
  10. THYROID MEDICATIONS [Concomitant]
  11. SIMVASTATIN [Concomitant]
     Indication: BLOOD CHOLESTEROL INCREASED
  12. CHLORD / CLIDI [Concomitant]
  13. LEVOXYL [Concomitant]
  14. YASMIN [Suspect]
     Indication: HORMONE THERAPY
     Dosage: UNK
     Dates: start: 20030101, end: 20080101
  15. MIRALAX [Concomitant]

REACTIONS (3)
  - INJURY [None]
  - CHOLECYSTITIS CHRONIC [None]
  - PAIN [None]
